FAERS Safety Report 9998834 (Version 1)
Quarter: 2014Q1

REPORT INFORMATION
  Report Type: Spontaneous
  Country: US (occurrence: US)
  Receive Date: 20140312
  Receipt Date: 20140312
  Transmission Date: 20141002
  Serious: No
  Sender: FDA-Public Use
  Company Number: US-BIOGENIDEC-2014BI020417

PATIENT
  Sex: Female

DRUGS (4)
  1. TECFIDERA [Suspect]
     Indication: MULTIPLE SCLEROSIS
     Route: 048
     Dates: start: 201305, end: 201401
  2. CALCIUM CARBONATE [Concomitant]
  3. B COMPLEX [Concomitant]
  4. VITAMIN C [Concomitant]

REACTIONS (4)
  - Malaise [Unknown]
  - Lack of satiety [Unknown]
  - Gastric disorder [Unknown]
  - Drug ineffective [Unknown]
